FAERS Safety Report 9741537 (Version 1)
Quarter: 2013Q4

REPORT INFORMATION
  Report Type: Report from Study
  Country: GB (occurrence: GB)
  Receive Date: 20131210
  Receipt Date: 20131210
  Transmission Date: 20140711
  Serious: Yes (Hospitalization)
  Sender: FDA-Public Use
  Company Number: GB-AMGEN-GBRCT2013086312

PATIENT
  Age: 89 Year
  Sex: Male
  Weight: 115 kg

DRUGS (7)
  1. ETANERCEPT [Suspect]
     Indication: PRODUCT USED FOR UNKNOWN INDICATION
     Dosage: 50 MG, WEEKLY
     Route: 065
     Dates: start: 20100113
  2. FUROSEMIDE [Concomitant]
     Dosage: UNK
     Dates: start: 20050807
  3. HYDROXYZINE [Concomitant]
     Dosage: UNK
     Dates: start: 20080326
  4. LOSARTAN [Concomitant]
     Dosage: UNK
     Dates: start: 20051024
  5. RABEPRAZOLE [Concomitant]
     Dosage: UNK
     Dates: start: 20051024
  6. TAMSULOSIN [Concomitant]
     Dosage: UNK
     Dates: start: 20051024
  7. ASPIRIN [Concomitant]
     Dosage: UNK

REACTIONS (1)
  - Cardiac disorder [Recovered/Resolved]
